FAERS Safety Report 9184953 (Version 4)
Quarter: 2013Q2

REPORT INFORMATION
  Report Type: Spontaneous
  Country: US (occurrence: US)
  Receive Date: 20130325
  Receipt Date: 20130613
  Transmission Date: 20140414
  Serious: Yes (Hospitalization, Other)
  Sender: FDA-Public Use
  Company Number: US-CELGENEUS-163-21880-13032751

PATIENT
  Sex: Male
  Weight: 107.1 kg

DRUGS (21)
  1. REVLIMID [Suspect]
     Indication: PLASMA CELL MYELOMA
     Dosage: 25 MILLIGRAM
     Route: 048
     Dates: start: 201006, end: 2010
  2. REVLIMID [Suspect]
     Dosage: 10-5MG
     Route: 048
     Dates: start: 201108, end: 2012
  3. REVLIMID [Suspect]
     Dosage: 20-25-20MG
     Route: 048
     Dates: start: 201210, end: 2012
  4. REVLIMID [Suspect]
     Dosage: 15 MILLIGRAM
     Route: 048
     Dates: start: 201303
  5. REVLIMID [Suspect]
     Dosage: 10 MILLIGRAM
     Route: 048
     Dates: start: 201207, end: 2012
  6. REVLIMID [Suspect]
     Dosage: 10 MILLIGRAM
     Route: 048
     Dates: start: 201208, end: 2012
  7. REVLIMID [Suspect]
     Dosage: 15 MILLIGRAM
     Route: 048
     Dates: start: 20130411
  8. THALOMID [Suspect]
     Indication: PLASMA CELL MYELOMA
     Dosage: 100 MILLIGRAM
     Route: 048
     Dates: start: 200905, end: 2009
  9. THALOMID [Suspect]
     Dosage: 150 MILLIGRAM
     Route: 048
     Dates: start: 200906, end: 2009
  10. THALOMID [Suspect]
     Dosage: 100 MILLIGRAM
     Route: 048
     Dates: start: 201006, end: 2010
  11. THALOMID [Suspect]
     Dosage: 150 MILLIGRAM
     Route: 048
     Dates: start: 201212
  12. VELCADE [Concomitant]
     Indication: PLASMA CELL MYELOMA
     Dosage: 1.2 MILLIGRAM/SQ. METER
     Route: 058
     Dates: start: 201303
  13. VELCADE [Concomitant]
     Dosage: 1 MILLIGRAM/SQ. METER
     Route: 058
     Dates: start: 20130411
  14. VELCADE [Concomitant]
     Dosage: 1 MILLIGRAM/SQ. METER
     Route: 058
     Dates: start: 201305
  15. CYCLOPHOSPHAMIDE [Concomitant]
     Indication: PLASMA CELL MYELOMA
     Dosage: 200 MILLIGRAM
     Route: 048
     Dates: start: 201303
  16. CYCLOPHOSPHAMIDE [Concomitant]
     Dosage: 150 MILLIGRAM
     Route: 048
     Dates: start: 20130411
  17. CYCLOPHOSPHAMIDE [Concomitant]
     Dosage: 150 MILLIGRAM
     Route: 048
     Dates: start: 201305
  18. DEXAMETHASONE [Concomitant]
     Indication: PLASMA CELL MYELOMA
     Dosage: 20 MILLIGRAM
     Route: 048
     Dates: start: 20130411
  19. DEXAMETHASONE [Concomitant]
     Dosage: 28 MILLIGRAM
     Route: 048
     Dates: start: 201305
  20. VALTREX [Concomitant]
     Indication: PROPHYLAXIS
     Route: 065
  21. BABY ASPIRIN [Concomitant]
     Indication: PRODUCT USED FOR UNKNOWN INDICATION
     Route: 065

REACTIONS (3)
  - Renal mass [Unknown]
  - Clostridium difficile infection [Unknown]
  - Cholecystitis [Unknown]
